FAERS Safety Report 19394341 (Version 1)
Quarter: 2021Q2

REPORT INFORMATION
  Report Type: Report from Study
  Country: GB (occurrence: GB)
  Receive Date: 20210609
  Receipt Date: 20210609
  Transmission Date: 20210717
  Serious: Yes (Hospitalization)
  Sender: FDA-Public Use
  Company Number: GB-GW PHARMA-201907GBGW2403

PATIENT

DRUGS (7)
  1. EPIDIOLEX [Suspect]
     Active Substance: CANNABIDIOL
     Indication: SEVERE MYOCLONIC EPILEPSY OF INFANCY
     Dosage: 10.3MG/KG, 180 MILLIGRAM, BID
     Route: 065
     Dates: start: 20190508
  2. DIAZEPAM. [Interacting]
     Active Substance: DIAZEPAM
     Dosage: 10 MILLIGRAM, SINGLE
     Route: 054
     Dates: start: 20190706, end: 20190706
  3. CLOBAZAM. [Suspect]
     Active Substance: CLOBAZAM
     Indication: EPILEPSY
     Dosage: 10 MILLIGRAM EVERY NIGHT
     Route: 065
  4. DIAZEPAM. [Interacting]
     Active Substance: DIAZEPAM
     Indication: EPILEPSY
     Dosage: 10 MILLIGRAM, PRN
     Route: 054
  5. STIRIPENTOL [Suspect]
     Active Substance: STIRIPENTOL
     Indication: EPILEPSY
     Dosage: 500 MILLIGRAM, BID
     Route: 065
  6. PHENYTOIN. [Suspect]
     Active Substance: PHENYTOIN
     Indication: SEIZURE PROPHYLAXIS
     Dosage: UNK
     Route: 065
  7. SODIUM VALPROATE [Concomitant]
     Active Substance: VALPROATE SODIUM
     Indication: EPILEPSY
     Dosage: 600 MILLIGRAM, QD (200MG AM AND 400MG PM)
     Route: 065

REACTIONS (4)
  - Drug interaction [Recovering/Resolving]
  - Seizure [Recovered/Resolved]
  - Infusion site extravasation [Recovering/Resolving]
  - Somnolence [Recovered/Resolved]

NARRATIVE: CASE EVENT DATE: 201907
